FAERS Safety Report 6387235-6 (Version None)
Quarter: 2009Q4

REPORT INFORMATION
  Report Type: 
  Country: None (occurrence: None)
  Receive Date: 20091002
  Receipt Date: 20090922
  Transmission Date: 20100525
  Serious: Yes (Hospitalization)
  Sender: FDA-Public Use
  Company Number: US-ELI_LILLY_AND_COMPANY-US200909005537

PATIENT
  Age: 19 Year
  Sex: Female

DRUGS (3)
  1. CYMBALTA [Suspect]
     Dosage: 60 MG, UNK
     Dates: start: 20071201, end: 20090701
  2. CYMBALTA [Suspect]
     Dosage: 30 MG, UNK
     Dates: start: 20090901
  3. LUVOX [Concomitant]
     Indication: ANXIETY
     Dates: end: 20090701

REACTIONS (3)
  - MUNCHAUSEN'S SYNDROME [None]
  - PYREXIA [None]
  - SEROTONIN SYNDROME [None]
